FAERS Safety Report 4296876-1 (Version None)
Quarter: 2004Q1

REPORT INFORMATION
  Report Type: 
  Country: None (occurrence: None)
  Receive Date: 20040126
  Receipt Date: 20031117
  Transmission Date: 20041129
  Serious: No
  Sender: FDA-Public Use
  Company Number: USA030434797

PATIENT
  Age: 8 Year
  Sex: Female
  Weight: 21 kg

DRUGS (7)
  1. STRATTERA [Suspect]
     Indication: ATTENTION DEFICIT/HYPERACTIVITY DISORDER
     Dosage: 60 MG/DAY
     Dates: start: 20030401
  2. FLOVENT [Concomitant]
  3. SINGULAIR [Concomitant]
  4. ZYRTEC [Concomitant]
  5. VITAMIN C [Concomitant]
  6. ALBUTEROL [Concomitant]
  7. ORAPRED (PREDNISOLONE) [Concomitant]

REACTIONS (11)
  - ANOREXIA [None]
  - BLOOD CORTISOL DECREASED [None]
  - CUSHING'S SYNDROME [None]
  - CUSHINGOID [None]
  - DIZZINESS [None]
  - DRUG INTERACTION [None]
  - INSOMNIA [None]
  - MUSCLE CRAMP [None]
  - NAUSEA [None]
  - PRESCRIBED OVERDOSE [None]
  - SKIN DISCOLOURATION [None]
